FAERS Safety Report 9660936 (Version 2)
Quarter: 2013Q4

REPORT INFORMATION
  Report Type: Report from Study
  Country: CA (occurrence: CA)
  Receive Date: 20131031
  Receipt Date: 20131111
  Transmission Date: 20140711
  Serious: Yes (Congenital Anomaly)
  Sender: FDA-Public Use
  Company Number: CA-JNJFOC-20131017963

PATIENT
  Sex: 0

DRUGS (3)
  1. REMICADE [Suspect]
     Indication: COLITIS ULCERATIVE
     Route: 064
     Dates: start: 201209, end: 201211
  2. PREDNISONE [Suspect]
     Indication: COLITIS ULCERATIVE
     Route: 064
  3. PREDNISONE [Suspect]
     Indication: COLITIS ULCERATIVE
     Route: 064

REACTIONS (4)
  - Oesophageal atresia [Unknown]
  - Tracheo-oesophageal fistula [Unknown]
  - Foetal exposure during pregnancy [Recovered/Resolved]
  - Premature baby [Not Recovered/Not Resolved]
